FAERS Safety Report 10182731 (Version 2)
Quarter: 2014Q2

REPORT INFORMATION
  Report Type: Spontaneous
  Country: US (occurrence: None)
  Receive Date: 20140516
  Receipt Date: 20140605
  Transmission Date: 20141212
  Serious: Yes (Hospitalization)
  Sender: FDA-Public Use
  Company Number: UNT-2014-000005

PATIENT
  Age: 57 Year
  Sex: Female
  Weight: 53.5 kg

DRUGS (5)
  1. REMODULIN [Suspect]
     Indication: COR PULMONALE CHRONIC
     Dosage: MIN.
     Route: 058
     Dates: start: 20130228
  2. REMODULIN [Suspect]
     Indication: COR PULMONALE CHRONIC
     Dosage: MIN.
     Route: 058
     Dates: start: 20130228
  3. REVATIO (SILDENAFIL CITRATE) [Concomitant]
  4. TRACLEER (BOSENTAN) [Concomitant]
  5. ADCIRCA (TADALAFIL) [Concomitant]

REACTIONS (2)
  - Pneumonia [None]
  - Blood pressure abnormal [None]
